FAERS Safety Report 7004329-2 (Version None)
Quarter: 2010Q3

REPORT INFORMATION
  Report Type: 
  Country: None (occurrence: None)
  Receive Date: 20100921
  Receipt Date: 20100913
  Transmission Date: 20110219
  Serious: No
  Sender: FDA-Public Use
  Company Number: US-BIOGENIDEC-2010BI010414

PATIENT
  Age: 70 Year
  Sex: Male

DRUGS (2)
  1. TYSABRI [Suspect]
     Indication: MULTIPLE SCLEROSIS
     Route: 042
     Dates: start: 20081015
  2. BACLOFEN [Concomitant]
     Indication: MUSCLE SPASMS
     Dates: start: 20050101

REACTIONS (4)
  - BACK PAIN [None]
  - DEVICE CONNECTION ISSUE [None]
  - MUSCLE SPASMS [None]
  - MUSCLE SPASTICITY [None]
